FAERS Safety Report 10204069 (Version 2)
Quarter: 2014Q3

REPORT INFORMATION
  Report Type: Spontaneous
  Country: DE (occurrence: DE)
  Receive Date: 20140529
  Receipt Date: 20140901
  Transmission Date: 20150326
  Serious: Yes (Life-Threatening)
  Sender: FDA-Public Use
  Company Number: PHHY2014DE065497

PATIENT
  Age: 48 Year
  Sex: Male

DRUGS (16)
  1. DIAZEPAM. [Concomitant]
     Active Substance: DIAZEPAM
     Dosage: 20 MG, DAILY
     Route: 048
     Dates: start: 20140225, end: 20140309
  2. QUILONIUM R [Concomitant]
     Dosage: 900 MG, DAILY
     Route: 048
     Dates: start: 20140116, end: 20140212
  3. DIAZEPAM. [Concomitant]
     Active Substance: DIAZEPAM
     Dosage: 30 MG, DAILY
     Route: 048
     Dates: start: 20140104, end: 20140224
  4. DIAZEPAM. [Concomitant]
     Active Substance: DIAZEPAM
     Dosage: 10 MG, DAILY
     Route: 048
     Dates: start: 20140314
  5. QUILONIUM R [Concomitant]
     Dosage: 1125 MG, DAILY
     Route: 048
     Dates: start: 20140213, end: 20140223
  6. LEPONEX [Suspect]
     Active Substance: CLOZAPINE
     Dosage: UNK
     Route: 048
     Dates: start: 1990
  7. LEPONEX [Suspect]
     Active Substance: CLOZAPINE
     Dosage: 25 MG, DAILY
     Route: 048
     Dates: start: 20140103, end: 20140105
  8. LEPONEX [Suspect]
     Active Substance: CLOZAPINE
     Dosage: 500 MG, DAILY
     Route: 048
     Dates: start: 20140129
  9. LEPONEX [Suspect]
     Active Substance: CLOZAPINE
     Dosage: 125 MG, DAILY
     Route: 048
     Dates: start: 20140112, end: 20140113
  10. DIAZEPAM. [Concomitant]
     Active Substance: DIAZEPAM
     Dosage: 15 MG, DAILY
     Route: 048
     Dates: start: 20140310, end: 20140313
  11. LEPONEX [Suspect]
     Active Substance: CLOZAPINE
     Dosage: 100 MG, DAILY
     Route: 048
     Dates: start: 20140110, end: 20140111
  12. NEUROCIL [Concomitant]
     Active Substance: LEVOMEPROMAZINE HYDROCHLORIDE\LEVOMEPROMAZINE MALEATE
     Dosage: 50 MG, DAILY
     Route: 048
     Dates: start: 20140120, end: 20140216
  13. QUILONIUM R [Concomitant]
     Dosage: 450 MG, DAILY
     Route: 048
     Dates: start: 20140110, end: 20140115
  14. LEPONEX [Suspect]
     Active Substance: CLOZAPINE
     Dosage: 125 - 500 MG
     Route: 048
     Dates: start: 20140114, end: 20140128
  15. LEPONEX [Suspect]
     Active Substance: CLOZAPINE
     Dosage: 50 MG, DAILY
     Route: 048
     Dates: start: 20140106, end: 20140107
  16. LEPONEX [Suspect]
     Active Substance: CLOZAPINE
     Dosage: 75 MG, DAILY
     Route: 048
     Dates: start: 20140108, end: 20140109

REACTIONS (1)
  - Pneumonia [Unknown]

NARRATIVE: CASE EVENT DATE: 20140216
